FAERS Safety Report 5394894-3 (Version None)
Quarter: 2007Q3

REPORT INFORMATION
  Report Type: 
  Country: None (occurrence: None)
  Receive Date: 20070720
  Receipt Date: 20070627
  Transmission Date: 20080115
  Serious: Yes (Hospitalization)
  Sender: FDA-Public Use
  Company Number: 2007SP013097

PATIENT
  Age: 12 Year
  Sex: Male

DRUGS (2)
  1. NASONEX [Suspect]
     Indication: SEASONAL ALLERGY
     Dosage: NAS
     Route: 045
     Dates: start: 20070601, end: 20070701
  2. RITALIN [Concomitant]

REACTIONS (3)
  - CHEST PAIN [None]
  - FATIGUE [None]
  - RASH [None]
